FAERS Safety Report 21949669 (Version 1)
Quarter: 2023Q1

REPORT INFORMATION
  Report Type: Spontaneous
  Country: US (occurrence: None)
  Receive Date: 20230202
  Receipt Date: 20230202
  Transmission Date: 20230418
  Serious: Yes (Other)
  Sender: FDA-Public Use
  Company Number: None

PATIENT
  Age: 61 Year
  Sex: Female
  Weight: 65.43 kg

DRUGS (2)
  1. PANZYGA [Suspect]
     Active Substance: HUMAN IMMUNOGLOBULIN G
     Indication: Chronic inflammatory demyelinating polyradiculoneuropathy
     Dosage: FREQUENCY : MONTHLY;?
     Route: 042
     Dates: start: 20230131
  2. PANZYGA [Suspect]
     Active Substance: HUMAN IMMUNOGLOBULIN G
     Indication: Chronic inflammatory demyelinating polyradiculoneuropathy
     Dosage: FREQUENCY : MONTHLY;?
     Route: 042
     Dates: start: 20230131

REACTIONS (3)
  - Swelling face [None]
  - Stomatitis [None]
  - Infusion related reaction [None]

NARRATIVE: CASE EVENT DATE: 20230202
